FAERS Safety Report 15631810 (Version 1)
Quarter: 2018Q4

REPORT INFORMATION
  Report Type: Spontaneous
  Country: US (occurrence: US)
  Receive Date: 20181119
  Receipt Date: 20181119
  Transmission Date: 20190205
  Serious: No
  Sender: FDA-Public Use
  Company Number: US-GLAXOSMITHKLINE-US2018208059

PATIENT
  Sex: Female

DRUGS (2)
  1. DICLOFENAC SODIUM GEL [Suspect]
     Active Substance: DICLOFENAC SODIUM
     Indication: PRODUCT USED FOR UNKNOWN INDICATION
     Route: 061
  2. LITHIUM. [Interacting]
     Active Substance: LITHIUM
     Indication: PRODUCT USED FOR UNKNOWN INDICATION

REACTIONS (6)
  - Drug interaction [Unknown]
  - Antipsychotic drug level increased [Unknown]
  - Drug clearance decreased [Unknown]
  - Blood creatinine increased [Unknown]
  - Exposure via skin contact [Unknown]
  - Accidental exposure to product [Unknown]
